FAERS Safety Report 9049715 (Version 2)
Quarter: 2013Q2

REPORT INFORMATION
  Report Type: Spontaneous
  Country: US (occurrence: US)
  Receive Date: 20130205
  Receipt Date: 20130416
  Transmission Date: 20140414
  Serious: Yes (Hospitalization)
  Sender: FDA-Public Use
  Company Number: US-BRISTOL-MYERS SQUIBB COMPANY-17342650

PATIENT
  Age: 75 Year
  Sex: Male
  Weight: 104.31 kg

DRUGS (2)
  1. COUMADIN [Suspect]
     Indication: AORTIC VALVE REPLACEMENT
  2. WARFARIN SODIUM [Suspect]
     Indication: AORTIC VALVE REPLACEMENT

REACTIONS (2)
  - Cardiac pacemaker replacement [Unknown]
  - International normalised ratio abnormal [Unknown]
